FAERS Safety Report 8945304 (Version 2)
Quarter: 2013Q1

REPORT INFORMATION
  Report Type: Spontaneous
  Country: AU (occurrence: AU)
  Receive Date: 20121205
  Receipt Date: 20130131
  Transmission Date: 20140127
  Serious: Yes (Death, Other)
  Sender: FDA-Public Use
  Company Number: AU-SANOFI-AVENTIS-2012SA087932

PATIENT
  Sex: Female

DRUGS (8)
  1. OXALIPLATIN [Suspect]
     Indication: NON-SMALL CELL LUNG CANCER
     Route: 042
  2. OXALIPLATIN [Suspect]
     Indication: COLON CANCER
     Route: 042
  3. FOLINIC ACID [Suspect]
     Indication: NON-SMALL CELL LUNG CANCER
     Route: 042
  4. FOLINIC ACID [Suspect]
     Indication: COLON CANCER
     Route: 042
  5. FLUOROURACIL [Suspect]
     Indication: NON-SMALL CELL LUNG CANCER
     Route: 042
  6. FLUOROURACIL [Suspect]
     Indication: COLON CANCER
     Route: 042
  7. BEVACIZUMAB [Concomitant]
     Indication: COLON CANCER
     Route: 042
  8. FOLFOX-4 [Concomitant]
     Indication: COLON CANCER
     Route: 042

REACTIONS (5)
  - Neoplasm malignant [Fatal]
  - Disease progression [Unknown]
  - Intestinal obstruction [Unknown]
  - Fistula [Unknown]
  - Pain [Unknown]
